FAERS Safety Report 4802430-2 (Version None)
Quarter: 2005Q4

REPORT INFORMATION
  Report Type: 
  Country: None (occurrence: None)
  Receive Date: 20051018
  Receipt Date: 20050921
  Transmission Date: 20060501
  Serious: Yes (Death, Hospitalization, Other)
  Sender: FDA-Public Use
  Company Number: ES-ABBOTT-05P-144-0311645-00

PATIENT
  Age: 40 Year
  Sex: Male

DRUGS (3)
  1. KALETRA [Suspect]
     Indication: HIV INFECTION
     Route: 048
     Dates: start: 20020912, end: 20050101
  2. STAVUDINE [Concomitant]
     Indication: HIV INFECTION
     Route: 048
     Dates: start: 20020912
  3. DIDANOSINE [Concomitant]
     Indication: HIV INFECTION
     Route: 048
     Dates: start: 20020912

REACTIONS (12)
  - ANOREXIA [None]
  - BLOOD GLUCOSE ABNORMAL [None]
  - CACHEXIA [None]
  - ENCEPHALOPATHY [None]
  - HAEMOGLOBIN ABNORMAL [None]
  - LYMPHADENOPATHY [None]
  - LYMPHOMA [None]
  - MEMORY IMPAIRMENT [None]
  - OEDEMA PERIPHERAL [None]
  - PALLOR [None]
  - PROTHROMBIN TIME ABNORMAL [None]
  - WEIGHT DECREASED [None]
